FAERS Safety Report 5637235-6 (Version None)
Quarter: 2008Q1

REPORT INFORMATION
  Report Type: 
  Country: None (occurrence: None)
  Receive Date: 20080225
  Receipt Date: 20070328
  Transmission Date: 20080703
  Serious: No
  Sender: FDA-Public Use
  Company Number: US-BRISTOL-MYERS SQUIBB COMPANY-13730494

PATIENT
  Age: 34 Year
  Sex: Female
  Weight: 63 kg

DRUGS (4)
  1. KENALOG [Suspect]
     Route: 008
     Dates: start: 20070219, end: 20070305
  2. ZYRTEC [Concomitant]
  3. NAPROXEN [Concomitant]
  4. MULTI-VITAMIN [Concomitant]

REACTIONS (3)
  - INSOMNIA [None]
  - MENSTRUATION IRREGULAR [None]
  - NIGHT SWEATS [None]
